FAERS Safety Report 19809479 (Version 1)
Quarter: 2021Q3

REPORT INFORMATION
  Report Type: Report from Study
  Country: US (occurrence: US)
  Receive Date: 20210908
  Receipt Date: 20210908
  Transmission Date: 20211014
  Serious: Yes (Hospitalization, Other)
  Sender: FDA-Public Use
  Company Number: US-MALLINCKRODT PHARMACEUTICALS-T202103482

PATIENT
  Age: 0 Year
  Sex: Male
  Weight: 10 kg

DRUGS (2)
  1. REPOSITORY CORTICOTROPIN INJECTION [Suspect]
     Active Substance: CORTICOTROPIN
     Indication: INFANTILE SPASMS
     Dosage: 0.33 MILLILITER, BID
     Route: 030
     Dates: start: 20210727, end: 2021
  2. REPOSITORY CORTICOTROPIN INJECTION [Suspect]
     Active Substance: CORTICOTROPIN
     Dosage: 0.13 MILLILITER, QD
     Route: 030
     Dates: start: 2021, end: 2021

REACTIONS (9)
  - Bacterial infection [Unknown]
  - Pleural effusion [Not Recovered/Not Resolved]
  - Irritability [Unknown]
  - Product dose omission issue [Recovered/Resolved]
  - Overfeeding of infant [Unknown]
  - Blood pressure increased [Recovered/Resolved]
  - Dehydration [Unknown]
  - Immune system disorder [Not Recovered/Not Resolved]
  - Needle issue [Unknown]

NARRATIVE: CASE EVENT DATE: 2021
